FAERS Safety Report 17347682 (Version 2)
Quarter: 2020Q1

REPORT INFORMATION
  Report Type: Spontaneous
  Country: JP (occurrence: JP)
  Receive Date: 20200130
  Receipt Date: 20200217
  Transmission Date: 20200409
  Serious: Yes (Hospitalization, Other)
  Sender: FDA-Public Use
  Company Number: JP-GLAXOSMITHKLINE-JP2020JPN015168

PATIENT
  Age: 71 Year
  Sex: Female

DRUGS (2)
  1. LAMICTAL [Suspect]
     Active Substance: LAMOTRIGINE
     Dosage: UNK
     Route: 048
  2. LAMICTAL [Suspect]
     Active Substance: LAMOTRIGINE
     Indication: BIPOLAR DISORDER
     Dosage: 250 MG
     Route: 048

REACTIONS (8)
  - Anxiety [Unknown]
  - Insomnia [Unknown]
  - Disturbance in attention [Recovered/Resolved]
  - Arthropathy [Unknown]
  - Paraesthesia oral [Unknown]
  - Mental impairment [Unknown]
  - Irritability [Unknown]
  - Listless [Unknown]
